FAERS Safety Report 14593293 (Version 1)
Quarter: 2018Q1

REPORT INFORMATION
  Report Type: Spontaneous
  Country: PT (occurrence: PT)
  Receive Date: 20180302
  Receipt Date: 20180302
  Transmission Date: 20180509
  Serious: Yes (Life-Threatening, Hospitalization)
  Sender: FDA-Public Use
  Company Number: PT-SA-2018SA052396

PATIENT
  Age: 79 Year
  Sex: Male

DRUGS (2)
  1. LOVENOX [Suspect]
     Active Substance: ENOXAPARIN SODIUM
     Indication: COAGULOPATHY
     Route: 058
  2. WARFARIN [Concomitant]
     Active Substance: WARFARIN
     Indication: COAGULOPATHY
     Route: 048

REACTIONS (4)
  - Injury [Unknown]
  - Fall [Unknown]
  - Abdominal wall haematoma [Unknown]
  - Injection site haematoma [Unknown]
